FAERS Safety Report 23087684 (Version 7)
Quarter: 2024Q2

REPORT INFORMATION
  Report Type: Report from Study
  Country: JP (occurrence: JP)
  Receive Date: 20231020
  Receipt Date: 20240514
  Transmission Date: 20240716
  Serious: Yes (Hospitalization, Other)
  Sender: FDA-Public Use
  Company Number: JP-MSD-M2023-43489

PATIENT
  Age: 76 Year
  Sex: Female
  Weight: 66.7 kg

DRUGS (4)
  1. PEMBROLIZUMAB [Suspect]
     Active Substance: PEMBROLIZUMAB
     Indication: Uterine cancer
     Dosage: 200 MILLIGRAM, Q3W
     Route: 041
     Dates: start: 20231002, end: 20231002
  2. LENVATINIB MESYLATE [Suspect]
     Active Substance: LENVATINIB MESYLATE
     Indication: Uterine cancer
     Dosage: 20 MILLIGRAM, QD
     Route: 048
     Dates: start: 20231002, end: 20231011
  3. LENVATINIB MESYLATE [Suspect]
     Active Substance: LENVATINIB MESYLATE
     Dosage: 14 MILLIGRAM, QD
     Route: 048
     Dates: start: 20231020, end: 20231021
  4. DOXORUBICIN [Suspect]
     Active Substance: DOXORUBICIN
     Indication: Uterine cancer
     Dosage: UNK
     Route: 065
     Dates: start: 20230707, end: 20230802

REACTIONS (4)
  - Cardiac failure acute [Recovering/Resolving]
  - Cardiotoxicity [Unknown]
  - Myocarditis [Recovered/Resolved]
  - Adverse event [Unknown]

NARRATIVE: CASE EVENT DATE: 20231001
